FAERS Safety Report 5797739-2 (Version None)
Quarter: 2008Q2

REPORT INFORMATION
  Report Type: 
  Country: None (occurrence: None)
  Receive Date: 20080630
  Receipt Date: 20080624
  Transmission Date: 20081010
  Serious: Yes (Death)
  Sender: FDA-Public Use
  Company Number: 163-20785-08041634

PATIENT
  Age: 84 Year
  Sex: Male

DRUGS (2)
  1. THALOMID [Suspect]
     Indication: MYELODYSPLASTIC SYNDROME
     Dosage: 100 MG, 1 IN 1 D, ORAL, 200 MG, 1 IN 1 D, ORAL
     Route: 048
     Dates: start: 20061124, end: 20061201
  2. THALOMID [Suspect]
     Indication: MYELODYSPLASTIC SYNDROME
     Dosage: 100 MG, 1 IN 1 D, ORAL, 200 MG, 1 IN 1 D, ORAL
     Route: 048
     Dates: start: 20070111, end: 20080301

REACTIONS (2)
  - CARDIAC FAILURE CONGESTIVE [None]
  - CARDIOMYOPATHY [None]
